FAERS Safety Report 19330111 (Version 2)
Quarter: 2021Q2

REPORT INFORMATION
  Report Type: Spontaneous
  Country: IN (occurrence: IN)
  Receive Date: 20210528
  Receipt Date: 20210610
  Transmission Date: 20210717
  Serious: Yes (Hospitalization)
  Sender: FDA-Public Use
  Company Number: IN-PFIZER INC-2021542483

PATIENT
  Age: 57 Year
  Sex: Female

DRUGS (4)
  1. PALBACE [Suspect]
     Active Substance: PALBOCICLIB
     Indication: BREAST CANCER METASTATIC
     Dosage: 125 MG, 1X/DAY
     Route: 048
     Dates: start: 20210104
  2. LETROZOLE. [Concomitant]
     Active Substance: LETROZOLE
     Dosage: 25 MG ONCE A DAY
  3. IMPOCAL [Concomitant]
     Dosage: ONCE A DAY
  4. THYROXINE [Concomitant]
     Active Substance: LEVOTHYROXINE
     Dosage: 50 UG ONCE A DAY

REACTIONS (2)
  - Hyperchlorhydria [Recovering/Resolving]
  - COVID-19 [Recovering/Resolving]
